FAERS Safety Report 6029349-6 (Version None)
Quarter: 2009Q1

REPORT INFORMATION
  Report Type: 
  Country: None (occurrence: None)
  Receive Date: 20090105
  Receipt Date: 20081204
  Transmission Date: 20090719
  Serious: Yes (Hospitalization)
  Sender: FDA-Public Use
  Company Number: URSO-2008-170

PATIENT
  Age: 79 Year
  Sex: Female

DRUGS (4)
  1. URSO (URSODEOXYCHOLIC ACID) 100 MG TABLTES [Suspect]
     Indication: LIVER DISORDER
     Dosage: 600 MG DAY ORAL
     Route: 048
     Dates: start: 20081009, end: 20081016
  2. NEO-MINOPHAGEN C (GLYCYRRHIZIN_LYCINE_CYSTEINE COMBINED DRUG) [Suspect]
     Indication: LIVER DISORDER
     Dosage: 60 ML INTRAVENOUS
     Route: 042
     Dates: start: 20081009, end: 20081016
  3. FLAVOXATE HYDROCHLORIDE [Suspect]
     Indication: URINARY INCONTINENCE
     Dosage: 400 MG DAY ORAL
     Route: 048
     Dates: start: 20080904, end: 20080926
  4. REPLACEMENT FLUID [Concomitant]

REACTIONS (1)
  - TOXIC SKIN ERUPTION [None]
